FAERS Safety Report 7019307-7 (Version None)
Quarter: 2010Q3

REPORT INFORMATION
  Report Type: 
  Country: None (occurrence: None)
  Receive Date: 20100928
  Receipt Date: 20100923
  Transmission Date: 20110219
  Serious: Yes (Disabling)
  Sender: FDA-Public Use
  Company Number: CA-MERCK-1009USA04936

PATIENT
  Sex: Male

DRUGS (3)
  1. ZOCOR [Suspect]
     Route: 048
  2. ASPIRIN [Concomitant]
     Route: 065
  3. ATENOLOL [Concomitant]
     Route: 065

REACTIONS (9)
  - ABDOMINAL DISCOMFORT [None]
  - ASTHENIA [None]
  - BALANCE DISORDER [None]
  - DIPLOPIA [None]
  - DIZZINESS [None]
  - FATIGUE [None]
  - GAIT DISTURBANCE [None]
  - HEADACHE [None]
  - PAIN IN EXTREMITY [None]
